FAERS Safety Report 16513056 (Version 1)
Quarter: 2019Q3

REPORT INFORMATION
  Report Type: Spontaneous
  Country: JP (occurrence: JP)
  Receive Date: 20190701
  Receipt Date: 20190701
  Transmission Date: 20191004
  Serious: Yes (Hospitalization)
  Sender: FDA-Public Use
  Company Number: JP-MYLANLABS-2019M1060799

PATIENT
  Age: 67 Year
  Sex: Female

DRUGS (3)
  1. METHOTREXATE. [Suspect]
     Active Substance: METHOTREXATE
     Indication: RHEUMATOID ARTHRITIS
     Dosage: RECEIVING FROM 10 YEARS PRIOR TO PRESENTATION
     Route: 065
  2. PREDNISOLONE. [Suspect]
     Active Substance: PREDNISOLONE
     Indication: RHEUMATOID ARTHRITIS
     Dosage: RECEIVING FROM 10 YEARS PRIOR TO PRESENTATION
     Route: 065
  3. TOCILIZUMAB. [Suspect]
     Active Substance: TOCILIZUMAB
     Indication: RHEUMATOID ARTHRITIS
     Dosage: RECEIVING FOR 2 MONTH PRIOR TO PRESENTATION
     Route: 065

REACTIONS (3)
  - Nocardia sepsis [Recovered/Resolved]
  - Nocardiosis [Recovered/Resolved]
  - Pulmonary nocardiosis [Recovered/Resolved]
